FAERS Safety Report 9324141 (Version 6)
Quarter: 2013Q4

REPORT INFORMATION
  Report Type: Spontaneous
  Country: CA (occurrence: CA)
  Receive Date: 20130603
  Receipt Date: 20131111
  Transmission Date: 20140711
  Serious: Yes (Hospitalization)
  Sender: FDA-Public Use
  Company Number: CA-SANOFI-AVENTIS-2013SA050713

PATIENT
  Age: 80 Year
  Sex: Female
  Weight: 35 kg

DRUGS (12)
  1. FERRLECIT [Suspect]
     Indication: IRON DEFICIENCY ANAEMIA
     Dosage: DOSE + FREQUENCY: 250 MG OVER 2 HOURS
     Route: 042
     Dates: start: 20130516
  2. PANTOLOC [Concomitant]
     Route: 065
  3. ZOCOR [Concomitant]
     Route: 065
  4. RAMIPRIL [Concomitant]
     Route: 065
  5. VITAMIN D [Concomitant]
     Dosage: DOSE:1000 UNIT(S)
     Route: 048
  6. ASA [Concomitant]
     Route: 048
  7. SPIRIVA [Concomitant]
     Route: 055
  8. ADVAIR [Concomitant]
     Route: 055
  9. VENTOLINE [Concomitant]
     Route: 055
  10. QUININE [Concomitant]
     Dosage: AT BEDTIME
     Route: 065
  11. PREGABALIN [Concomitant]
     Route: 065
  12. PROLIA [Concomitant]
     Dosage: EVERY 6 MONTH
     Route: 058

REACTIONS (13)
  - Diarrhoea [Recovered/Resolved]
  - Rectal haemorrhage [Recovered/Resolved]
  - Colitis ischaemic [Recovered/Resolved]
  - Intestinal ischaemia [Recovered/Resolved]
  - Hypotension [Recovered/Resolved]
  - Abdominal pain [Recovered/Resolved]
  - Abdominal pain upper [Recovered/Resolved]
  - Nausea [Recovered/Resolved]
  - Vomiting [Recovered/Resolved]
  - Pain [Recovered/Resolved]
  - Dyspnoea [Recovered/Resolved]
  - Chest discomfort [Recovered/Resolved]
  - Abdominal pain upper [Recovered/Resolved]
